FAERS Safety Report 9781007 (Version 1)
Quarter: 2013Q4

REPORT INFORMATION
  Report Type: Spontaneous
  Country: US (occurrence: None)
  Receive Date: 20131223
  Receipt Date: 20131223
  Transmission Date: 20140711
  Serious: Yes (Other)
  Sender: FDA-Public Use
  Company Number: None

PATIENT
  Age: 28 Year
  Sex: Female

DRUGS (1)
  1. ADDERALL [Suspect]
     Indication: ATTENTION DEFICIT/HYPERACTIVITY DISORDER
     Dosage: 1 CAPSULE  ONCE DAILY  TAKEN BY MOUTH
     Route: 048
     Dates: start: 20131209, end: 20131222

REACTIONS (7)
  - Fatigue [None]
  - Migraine [None]
  - Somnolence [None]
  - Drug ineffective [None]
  - Product substitution issue [None]
  - Product quality issue [None]
  - Decreased appetite [None]
